FAERS Safety Report 8824885 (Version 2)
Quarter: 2012Q4

REPORT INFORMATION
  Report Type: 
  Country: US (occurrence: US)
  Receive Date: 20121004
  Receipt Date: 20121028
  Transmission Date: 20130627
  Serious: No
  Sender: FDA-Public Use
  Company Number: US-009507513-1209USA008734

PATIENT
  Age: 51 None
  Sex: Male

DRUGS (2)
  1. PEGINTRON [Suspect]
     Indication: HEPATITIS C
     Dosage: UNK
     Dates: start: 20120918
  2. RIBAVIRIN [Suspect]
     Indication: HEPATITIS C
     Dosage: UNK
     Dates: start: 20120918

REACTIONS (12)
  - Bone pain [Unknown]
  - Hyperhidrosis [Unknown]
  - Arthralgia [Unknown]
  - Pain [Unknown]
  - Injection site erythema [Unknown]
  - Heart rate increased [Unknown]
  - Influenza like illness [Unknown]
  - Chills [Unknown]
  - Headache [Unknown]
  - Sluggishness [Unknown]
  - Injection site urticaria [Unknown]
  - Weight decreased [Unknown]
